FAERS Safety Report 16660078 (Version 1)
Quarter: 2019Q3

REPORT INFORMATION
  Report Type: Spontaneous
  Country: CA (occurrence: CA)
  Receive Date: 20190802
  Receipt Date: 20190802
  Transmission Date: 20191004
  Serious: Yes (Other)
  Sender: FDA-Public Use
  Company Number: CA-009507513-1908CAN000521

PATIENT
  Age: 75 Year
  Sex: Female

DRUGS (3)
  1. CUBICIN [Suspect]
     Active Substance: DAPTOMYCIN
     Dosage: UNK
  2. CEFTAROLINE FOSAMIL ACETATE [Suspect]
     Active Substance: CEFTAROLINE FOSAMIL
     Dosage: UNK
  3. CUBICIN [Suspect]
     Active Substance: DAPTOMYCIN
     Dosage: UNK

REACTIONS (4)
  - Enterococcal infection [Not Recovered/Not Resolved]
  - Osteomyelitis [Recovered/Resolved]
  - Abscess [Unknown]
  - Enterococcal infection [Recovered/Resolved]
